FAERS Safety Report 6207534-8 (Version None)
Quarter: 2009Q2

REPORT INFORMATION
  Report Type: 
  Country: None (occurrence: None)
  Receive Date: 20090528
  Receipt Date: 20090525
  Transmission Date: 20091009
  Serious: Yes (Death, Hospitalization)
  Sender: FDA-Public Use
  Company Number: CA-WYE-H09479509

PATIENT
  Age: 60 Year
  Sex: Female
  Weight: 75.4 kg

DRUGS (7)
  1. GEMTUZUMAB OZOGAMICIN [Suspect]
     Indication: ACUTE MYELOID LEUKAEMIA
     Dates: start: 20081110, end: 20081110
  2. DAUNORUBICIN HCL [Suspect]
     Indication: ACUTE MYELOID LEUKAEMIA
     Dates: start: 20081107, end: 20081109
  3. CYTARABINE [Suspect]
     Indication: ACUTE MYELOID LEUKAEMIA
     Dosage: CONSOLIDATION: 2 CYCLES ^HIGH DOSE^ (UNSPECIFIED)
     Dates: start: 20081217
  4. CYTARABINE [Suspect]
     Dates: start: 20090212, end: 20090212
  5. CYTARABINE [Suspect]
     Dates: start: 20090214, end: 20090214
  6. CYTARABINE [Suspect]
     Dates: start: 20090216, end: 20090216
  7. CYTARABINE [Suspect]
     Dosage: INDUCTION AT UNKNOWN DOSE
     Dates: start: 20081107, end: 20081113

REACTIONS (1)
  - DISEASE PROGRESSION [None]
